FAERS Safety Report 15388420 (Version 2)
Quarter: 2018Q3

REPORT INFORMATION
  Report Type: Spontaneous
  Country: JP (occurrence: JP)
  Receive Date: 20180915
  Receipt Date: 20180920
  Transmission Date: 20181010
  Serious: Yes (Hospitalization)
  Sender: FDA-Public Use
  Company Number: JP-ASTRAZENECA-2018SF16727

PATIENT
  Age: 30211 Day
  Sex: Female

DRUGS (15)
  1. TENELIA [Concomitant]
     Active Substance: TENELIGLIPTIN
     Indication: TYPE 2 DIABETES MELLITUS
     Dosage: 20 MG DAILY, AFTER BREAKFASTS FOR SEVEN DAYS
     Route: 048
  2. PRIMPERAN [Concomitant]
     Active Substance: METOCLOPRAMIDE HYDROCHLORIDE
     Route: 065
  3. LIMAPROST ALFADEX [Concomitant]
     Active Substance: LIMAPROST
     Dosage: 5 UG THREE TIMES A DAY AFTER EACH MEAL FOR SEVEN DAYS
     Route: 048
  4. FORXIGA [Suspect]
     Active Substance: DAPAGLIFLOZIN
     Indication: TYPE 2 DIABETES MELLITUS
     Route: 048
     Dates: start: 20180623, end: 20180820
  5. FLAVOXATE HYDROCHLORIDE. [Concomitant]
     Active Substance: FLAVOXATE HYDROCHLORIDE
     Indication: POLLAKIURIA
     Dosage: 200 MG THREE TIMES A DAY AFTER EACH MEAL FOR SEVEN DAYS
     Route: 048
  6. ADALAT CC [Concomitant]
     Active Substance: NIFEDIPINE
     Indication: ESSENTIAL HYPERTENSION
     Dosage: 40 MG DAILY AFTER BREAKFASTS FOR SEVEN DAYS
     Route: 048
  7. ADALAT CC [Concomitant]
     Active Substance: NIFEDIPINE
     Indication: ESSENTIAL HYPERTENSION
     Dosage: 20 MG DAILY AFTER EVENING MEALS FOR SEVEN DAYS
     Route: 048
  8. CLOPIDOGREL [Concomitant]
     Active Substance: CLOPIDOGREL BISULFATE
     Indication: ANTIPLATELET THERAPY
     Dosage: 75 MG DAILY AFTER BREAKFASTS FOR SEVEN DAYS
     Route: 048
  9. EDIROL [Concomitant]
     Active Substance: ELDECALCITOL
     Indication: OSTEOPOROSIS
     Dosage: 0.5 MG DAILY AFTER BREAKFASTS FOR SEVEN DAYS
     Route: 048
  10. SENNOSIDE [Concomitant]
     Active Substance: SENNOSIDES
     Dosage: 36 MG DAILY AFTER EVENING MEALS FOR SEVEN DAYS
     Route: 048
  11. SOLULACT TMR [Concomitant]
     Route: 065
  12. HALCION [Concomitant]
     Active Substance: TRIAZOLAM
     Indication: INSOMNIA
     Dosage: 0.25 MG DAILY BEFORE BEDTIME FOR SEVEN DAYS
     Route: 048
  13. TAKECAB [Concomitant]
     Active Substance: VONOPRAZAN FUMURATE
     Dosage: 10 MG DAILY AFTER EVENING MEALS FOR SEVEN DAYS
     Route: 048
  14. RISEDRONATE SODIUM. [Concomitant]
     Active Substance: RISEDRONATE SODIUM
     Indication: OSTEOPOROSIS
     Dosage: 17.5 MG ONCE A WEEK AT THE TIME OF AWAKENING FOR ONE DAY
     Route: 048
  15. TIENAM [Concomitant]
     Active Substance: CILASTATIN SODIUM\IMIPENEM
     Route: 065

REACTIONS (1)
  - Ketoacidosis [Unknown]

NARRATIVE: CASE EVENT DATE: 20180819
